FAERS Safety Report 12249045 (Version 1)
Quarter: 2016Q2

REPORT INFORMATION
  Report Type: Spontaneous
  Country: US (occurrence: None)
  Receive Date: 20160407
  Receipt Date: 20160407
  Transmission Date: 20160815
  Serious: Yes (Other)
  Sender: FDA-Public Use
  Company Number: None

PATIENT
  Age: 79 Year
  Sex: Male

DRUGS (14)
  1. LISINOPRIL-HYDROCHLOROTHIAZIDE (PRINZIDE, ZESTROETIC) [Concomitant]
  2. CIALIS [Concomitant]
     Active Substance: TADALAFIL
  3. LIPITOR [Concomitant]
     Active Substance: ATORVASTATIN CALCIUM
  4. AMBIEN [Concomitant]
     Active Substance: ZOLPIDEM TARTRATE
  5. LEVOTHYROXINE. [Concomitant]
     Active Substance: LEVOTHYROXINE
  6. ELIQUIS [Suspect]
     Active Substance: APIXABAN
     Indication: PRODUCT USED FOR UNKNOWN INDICATION
     Route: 048
     Dates: start: 20160225, end: 20160305
  7. DIPHENOXYLATE-ATROPHINE (LOMOTIL) [Concomitant]
  8. TRIAMTERENE-HYDROCHLOROTHIAZIDE(DYAZIDE) [Concomitant]
  9. MONTELUKAST (SINGULAR) [Concomitant]
  10. VITAMIN D3 [Concomitant]
     Active Substance: CHOLECALCIFEROL
  11. OMEGA-3 ACIDS [Concomitant]
     Active Substance: OMEGA-3 FATTY ACIDS
  12. MEN^S MULTI-VITAMIN/MINERAL [Concomitant]
  13. METOPROLOL (TROPROL XL) [Concomitant]
  14. TESTOSTERONE (DEPOTESTOTERONE CYPIONATE) [Concomitant]

REACTIONS (5)
  - Sleep disorder [None]
  - Self-injurious ideation [None]
  - Fatigue [None]
  - Nightmare [None]
  - Stress [None]

NARRATIVE: CASE EVENT DATE: 20160226
